FAERS Safety Report 18911656 (Version 10)
Quarter: 2022Q1

REPORT INFORMATION
  Report Type: Report from Study
  Country: CA (occurrence: CA)
  Receive Date: 20210218
  Receipt Date: 20220315
  Transmission Date: 20220424
  Serious: Yes (Hospitalization)
  Sender: FDA-Public Use
  Company Number: CA-BRISTOL-MYERS SQUIBB COMPANY-BMS-2021-013849

PATIENT
  Age: 51 Year
  Sex: Male

DRUGS (3)
  1. NIVOLUMAB [Suspect]
     Active Substance: NIVOLUMAB
     Indication: Squamous cell carcinoma of head and neck
     Dosage: 200 MILLIGRAM, Q2WK
     Route: 042
     Dates: start: 20210114
  2. NIVOLUMAB [Suspect]
     Active Substance: NIVOLUMAB
     Dosage: 480 MILLIGRAM, Q4WK
     Route: 042
     Dates: start: 20210114
  3. PERINDOPRIL [Concomitant]
     Active Substance: PERINDOPRIL
     Indication: Product used for unknown indication
     Dosage: UNK
     Route: 065

REACTIONS (11)
  - Aphasia [Recovered/Resolved]
  - Sinusitis [Unknown]
  - Fatigue [Unknown]
  - Pain [Unknown]
  - Nausea [Unknown]
  - Anxiety [Unknown]
  - Rhinitis [Unknown]
  - Depression [Unknown]
  - Somnolence [Unknown]
  - Product dose omission issue [Unknown]
  - Condition aggravated [Unknown]

NARRATIVE: CASE EVENT DATE: 20210129
